FAERS Safety Report 15339344 (Version 1)
Quarter: 2018Q3

REPORT INFORMATION
  Report Type: Spontaneous
  Country: CH (occurrence: CH)
  Receive Date: 20180831
  Receipt Date: 20180831
  Transmission Date: 20181010
  Serious: Yes (Hospitalization)
  Sender: FDA-Public Use
  Company Number: CH-TEVA-2018-CH-949144

PATIENT
  Age: 76 Year
  Sex: Male

DRUGS (8)
  1. PLAVIX [Concomitant]
     Active Substance: CLOPIDOGREL BISULFATE
     Dosage: 75 MILLIGRAM DAILY; PLAVIX (CLOPIDOGREL) TABL 75 MG
     Route: 048
  2. CO?AMOXI?MEPHA [Suspect]
     Active Substance: AMOXICILLIN\CLAVULANATE POTASSIUM
     Dosage: 2 GRAM DAILY; CO?AMOXI?MEPHA (AMOXICILLIN, CLAVULANIC ACID), LACTAB, 1 G P.O. 1?0?1
     Route: 048
  3. ASPIRIN CARDIO [Concomitant]
     Active Substance: ASPIRIN
     Dosage: 100 MILLIGRAM DAILY; ASPIRIN CARDIO (ACETYL SALICYLIC ACID), ENTERIC COATED TABLETS, 100 MG
     Route: 048
  4. EUTHYROX [Concomitant]
     Active Substance: LEVOTHYROXINE SODIUM
     Dosage: .05 MILLIGRAM DAILY; EUTHYROX (LEVOTHYROXINE), TABLETS, 0.05 MG, P.O. 1?0?0?0
     Route: 048
  5. PANTOZOL [Concomitant]
     Active Substance: PANTOPRAZOLE SODIUM
     Dosage: 40 MILLIGRAM DAILY; PANTOZOL (PANTOPRAZOL), ENTERIC COATED TABLETS, 40 MG, P.O. 1?0?0?0
     Route: 048
  6. BILOL [Concomitant]
     Active Substance: BISOPROLOL
     Dosage: 5 MILLIGRAM DAILY; BILOL (BISOPROLOL), ENTERIC COATED TABLETS, 5 MG, P.O. 1?0?0?0
     Route: 048
  7. GALVUMET [Suspect]
     Active Substance: METFORMIN HYDROCHLORIDE\VILDAGLIPTIN
     Dosage: GALVUMET (VILDAGLIPTIN, METFORMIN), ENTERIC COATED TABLETS, 50/1000 MG, P.O. 1?0?1?0
     Route: 048
  8. ZESTRIL [Suspect]
     Active Substance: LISINOPRIL
     Dosage: TABLET, 5 MG P.O.
     Route: 048

REACTIONS (2)
  - Angioedema [Recovered/Resolved]
  - Swollen tongue [Recovered/Resolved]

NARRATIVE: CASE EVENT DATE: 20180711
